FAERS Safety Report 4989457-5 (Version None)
Quarter: 2006Q2

REPORT INFORMATION
  Report Type: 
  Country: None (occurrence: None)
  Receive Date: 20060502
  Receipt Date: 20050829
  Transmission Date: 20061013
  Serious: Yes (Hospitalization)
  Sender: FDA-Public Use
  Company Number: US-MERCK-0508USA04932

PATIENT
  Sex: Female
  Weight: 73 kg

DRUGS (9)
  1. VIOXX [Suspect]
     Indication: ARTHRITIS
     Route: 048
  2. BETAPACE [Concomitant]
     Indication: CARDIAC DISORDER
     Route: 065
  3. PRILOSEC [Concomitant]
     Indication: DYSPEPSIA
     Route: 065
  4. DIGITEK [Concomitant]
     Route: 065
  5. LISINOPRIL [Concomitant]
     Route: 065
  6. TRIAMTERENE [Concomitant]
     Route: 065
  7. [THERAPY UNSPECIFIED] [Concomitant]
     Route: 065
  8. [THERAPY UNSPECIFIED] [Concomitant]
     Route: 055
  9. TYLENOL W/ CODEINE NO. 3 [Concomitant]
     Route: 065

REACTIONS (3)
  - DIZZINESS [None]
  - HEART RATE ABNORMAL [None]
  - HYPERTENSION [None]
